FAERS Safety Report 9469649 (Version 1)
Quarter: 2013Q3

REPORT INFORMATION
  Report Type: Spontaneous
  Country: US (occurrence: US)
  Receive Date: 20130822
  Receipt Date: 20130822
  Transmission Date: 20140515
  Serious: Yes (Hospitalization)
  Sender: FDA-Public Use
  Company Number: US-ELI_LILLY_AND_COMPANY-US201308004407

PATIENT
  Age: 70 Year
  Sex: Female

DRUGS (8)
  1. FORTEO [Suspect]
     Indication: OSTEOPOROSIS
     Dosage: UNK, QD
     Dates: start: 20120410
  2. SYNTHROID [Concomitant]
     Dosage: 125 UG, QD
  3. NEXIUM [Concomitant]
     Dosage: 40 MG, QD
  4. THEOPHYLLINE [Concomitant]
     Dosage: 300 MG, BID
  5. ADVAIR [Concomitant]
     Dosage: UNK, BID
  6. FEXOFENADINE [Concomitant]
     Dosage: 180 MG, QD
  7. TYLENOL                            /00020001/ [Concomitant]
     Dosage: UNK, PRN
  8. CELEBREX [Concomitant]
     Dosage: 200 MG, UNK

REACTIONS (4)
  - Convulsion [Recovered/Resolved]
  - Injury [Unknown]
  - Memory impairment [Unknown]
  - Incorrect product storage [Recovered/Resolved]
